FAERS Safety Report 8810798 (Version 4)
Quarter: 2012Q4

REPORT INFORMATION
  Report Type: 
  Country: US (occurrence: US)
  Receive Date: 20120927
  Receipt Date: 20121107
  Transmission Date: 20130627
  Serious: Yes (Other)
  Sender: FDA-Public Use
  Company Number: US-009507513-1209USA005134

PATIENT
  Sex: Male

DRUGS (4)
  1. REBETOL [Suspect]
     Indication: HEPATITIS C
     Dosage: UNK
     Dates: start: 20120906, end: 20121004
  2. VICTRELIS [Suspect]
     Indication: HEPATITIS C
     Dosage: UNK
     Dates: start: 20121004, end: 20121004
  3. PEGASYS [Suspect]
     Indication: HEPATITIS C
     Dosage: UNK
     Dates: start: 20120906, end: 20121004
  4. LACTULOSE [Concomitant]
     Indication: AMMONIA INCREASED

REACTIONS (23)
  - Pyrexia [Unknown]
  - Somnolence [Unknown]
  - Pollakiuria [Unknown]
  - Nasopharyngitis [Unknown]
  - Sinus headache [Unknown]
  - Headache [Unknown]
  - Musculoskeletal pain [Unknown]
  - Sinusitis [Unknown]
  - Injection site rash [Unknown]
  - Dry mouth [Unknown]
  - Poor quality sleep [Unknown]
  - Abnormal dreams [Unknown]
  - Hepatic pain [Unknown]
  - Flatulence [Unknown]
  - Abdominal distension [Unknown]
  - Alopecia [Unknown]
  - Fatigue [Unknown]
  - Ammonia increased [Unknown]
  - Frequent bowel movements [Unknown]
  - Hepatic cancer [Unknown]
  - Hepatic cancer [Unknown]
  - Blister [Unknown]
  - Infection [Unknown]
